FAERS Safety Report 17478207 (Version 2)
Quarter: 2020Q3

REPORT INFORMATION
  Report Type: Spontaneous
  Country: GB (occurrence: GB)
  Receive Date: 20200229
  Receipt Date: 20200921
  Transmission Date: 20201102
  Serious: Yes (Other)
  Sender: FDA-Public Use
  Company Number: GB-ACCORD-173918

PATIENT
  Age: 72 Year
  Sex: Female
  Weight: 52 kg

DRUGS (7)
  1. PHENYTOIN. [Concomitant]
     Active Substance: PHENYTOIN
     Dosage: AT NIGHT
  2. PHENYTOIN. [Concomitant]
     Active Substance: PHENYTOIN
     Dosage: AT NIGHT
     Dates: start: 20121026
  3. THEICAL?D3 [Concomitant]
     Dates: start: 20160617
  4. PICATO [Concomitant]
     Active Substance: INGENOL MEBUTATE
     Dosage: APPLY FOR 3 DAYS
     Dates: start: 20191122, end: 20191125
  5. LEVETIRACETAM. [Suspect]
     Active Substance: LEVETIRACETAM
     Indication: PRODUCT USED FOR UNKNOWN INDICATION
     Dosage: TAKE ONE IN THE MORNING AND TWO AT NIGHT
     Dates: start: 20191114
  6. LEVETIRACETAM. [Suspect]
     Active Substance: LEVETIRACETAM
     Indication: EPILEPSY
     Dosage: 500MG AM AND 1G PM
     Route: 048
     Dates: start: 20191120, end: 20200207
  7. DERMOL [Concomitant]
     Active Substance: BENZALKONIUM CHLORIDE\CHLORHEXIDINE HYDROCHLORIDE\ISOPROPYL MYRISTATE\PARAFFIN
     Dosage: USE AS DIRECTED,SHOWER EMOLLIENT
     Route: 061
     Dates: start: 20040616

REACTIONS (3)
  - Epilepsy [Recovered/Resolved]
  - Seizure [Recovered/Resolved]
  - Product substitution issue [Unknown]

NARRATIVE: CASE EVENT DATE: 20200207
